FAERS Safety Report 9412267 (Version 1)
Quarter: 2013Q3

REPORT INFORMATION
  Report Type: Spontaneous
  Country: GB (occurrence: GB)
  Receive Date: 20130722
  Receipt Date: 20130722
  Transmission Date: 20140515
  Serious: Yes (Other)
  Sender: FDA-Public Use
  Company Number: GB-ROCHE-1240597

PATIENT
  Age: 33 Year
  Sex: Male
  Weight: 90 kg

DRUGS (6)
  1. COPEGUS [Suspect]
     Indication: HEPATITIS C
     Route: 048
     Dates: start: 20130314
  2. COPEGUS [Suspect]
     Route: 048
     Dates: start: 20130605
  3. INCIVO [Suspect]
     Indication: HEPATITIS C
     Route: 048
     Dates: start: 20130314, end: 20130528
  4. PEGASYS [Suspect]
     Indication: HEPATITIS C
     Route: 058
     Dates: start: 20130314
  5. PEGASYS [Suspect]
     Route: 058
     Dates: start: 20130605
  6. CITALOPRAM [Concomitant]
     Route: 065
     Dates: start: 20121009

REACTIONS (2)
  - Dermatitis psoriasiform [Unknown]
  - Melanocytic naevus [Unknown]
